FAERS Safety Report 16092475 (Version 2)
Quarter: 2019Q1

REPORT INFORMATION
  Report Type: Spontaneous
  Country: PT (occurrence: PT)
  Receive Date: 20190319
  Receipt Date: 20190331
  Transmission Date: 20190418
  Serious: Yes (Hospitalization, Other)
  Sender: FDA-Public Use
  Company Number: PHHY2019PT061068

PATIENT
  Age: 73 Year
  Sex: Male

DRUGS (2)
  1. METFORMIN [Suspect]
     Active Substance: METFORMIN HYDROCHLORIDE
     Indication: DIABETES MELLITUS
     Route: 065
  2. GLICLAZIDE [Suspect]
     Active Substance: GLICLAZIDE
     Indication: DIABETES MELLITUS
     Route: 065

REACTIONS (6)
  - Autoimmune pancreatitis [Unknown]
  - Jaundice cholestatic [Unknown]
  - Weight decreased [Unknown]
  - Metabolic disorder [Unknown]
  - Sepsis [Recovering/Resolving]
  - Liver abscess [Recovering/Resolving]

NARRATIVE: CASE EVENT DATE: 2016
